FAERS Safety Report 5223259-X (Version None)
Quarter: 2007Q1

REPORT INFORMATION
  Report Type: 
  Country: None (occurrence: None)
  Receive Date: 20070124
  Receipt Date: 20070112
  Transmission Date: 20070707
  Serious: Yes (Hospitalization)
  Sender: FDA-Public Use
  Company Number: GXKR2007IT00760

PATIENT
  Age: 76 Year
  Sex: Female

DRUGS (1)
  1. PREDNISONE [Suspect]
     Indication: SJOGREN'S SYNDROME
     Dosage: 25 MG, QD, ORAL
     Route: 048

REACTIONS (7)
  - ANAEMIA [None]
  - DUODENITIS [None]
  - GASTRITIS [None]
  - OESOPHAGEAL CANDIDIASIS [None]
  - OESOPHAGITIS [None]
  - STRONGYLOIDIASIS [None]
  - WEIGHT DECREASED [None]
